FAERS Safety Report 20729876 (Version 2)
Quarter: 2022Q2

REPORT INFORMATION
  Report Type: Report from Study
  Country: US (occurrence: US)
  Receive Date: 20220420
  Receipt Date: 20220428
  Transmission Date: 20220721
  Serious: Yes (Death, Hospitalization)
  Sender: FDA-Public Use
  Company Number: US-INSMED, INC.-2022-00416-US

PATIENT
  Sex: Female
  Weight: 34.014 kg

DRUGS (9)
  1. ARIKAYCE [Suspect]
     Active Substance: AMIKACIN
     Indication: Mycobacterium avium complex infection
     Dosage: 590 MILLIGRAM, QD
     Route: 055
     Dates: start: 20220211, end: 2022
  2. ARIKAYCE [Suspect]
     Active Substance: AMIKACIN
     Dosage: 590 UNK
     Route: 055
     Dates: start: 2022, end: 20220225
  3. ALBUTEROL [Concomitant]
     Active Substance: ALBUTEROL
     Indication: Product used for unknown indication
     Dosage: UNK
     Route: 055
  4. AMIKACIN [Concomitant]
     Active Substance: AMIKACIN
     Indication: Product used for unknown indication
     Dosage: UNK
     Route: 042
  5. MOXIFLOXACIN [Concomitant]
     Active Substance: MOXIFLOXACIN
     Indication: Product used for unknown indication
     Dosage: UNK
     Route: 065
  6. BACTRIM [Concomitant]
     Active Substance: SULFAMETHOXAZOLE\TRIMETHOPRIM
     Indication: Product used for unknown indication
     Dosage: UNK
     Route: 065
  7. AZITHROMYCIN [Concomitant]
     Active Substance: AZITHROMYCIN
     Indication: Product used for unknown indication
     Dosage: UNK
     Route: 065
  8. BUDESONIDE [Concomitant]
     Active Substance: BUDESONIDE
     Indication: Product used for unknown indication
     Dosage: UNK
     Route: 055
  9. SODIUM CHLORIDE [Concomitant]
     Active Substance: SODIUM CHLORIDE
     Indication: Product used for unknown indication
     Dosage: UNK
     Route: 055

REACTIONS (10)
  - Bronchopulmonary aspergillosis [Fatal]
  - Sputum increased [Unknown]
  - Dysgeusia [Recovered/Resolved]
  - Productive cough [Unknown]
  - Cough [Recovered/Resolved]
  - Dysphonia [Recovered/Resolved]
  - Dyspnoea [Recovered/Resolved]
  - Therapy interrupted [Unknown]
  - Device leakage [Unknown]
  - Drug dose omission by device [Unknown]

NARRATIVE: CASE EVENT DATE: 20220101
